FAERS Safety Report 14860538 (Version 2)
Quarter: 2018Q2

REPORT INFORMATION
  Report Type: Spontaneous
  Country: DE (occurrence: DE)
  Receive Date: 20180508
  Receipt Date: 20180612
  Transmission Date: 20180711
  Serious: Yes (Death, Hospitalization)
  Sender: FDA-Public Use
  Company Number: DE-PFIZER INC-2018187451

PATIENT
  Age: 63 Year
  Sex: Male
  Weight: 91 kg

DRUGS (12)
  1. CALCIUM FOLINATE [Suspect]
     Active Substance: LEUCOVORIN CALCIUM
     Indication: COLORECTAL CANCER
     Dosage: 1000 MG, EVERY WEEK
     Route: 042
     Dates: start: 20130610, end: 20131029
  2. IRINOTECAN [Suspect]
     Active Substance: IRINOTECAN
     Dosage: 120 MG, EVERY WEEK
     Route: 042
     Dates: start: 20130729, end: 20131029
  3. AMLODIPIN [Concomitant]
     Active Substance: AMLODIPINE BESYLATE
     Indication: HYPERTENSION
     Dosage: 5 MG, UNK
     Route: 048
     Dates: start: 20050107, end: 20140402
  4. AVASTIN [Suspect]
     Active Substance: BEVACIZUMAB
     Dosage: 450 MG, EVERY 15 DAYS
     Route: 042
     Dates: start: 20140224, end: 20140310
  5. 5-FLUOROURACIL [Suspect]
     Active Substance: FLUOROURACIL
     Indication: COLORECTAL CANCER
     Dosage: 4000 MG, EVERY WEEK
     Route: 042
     Dates: start: 20130610, end: 20131029
  6. AVASTIN [Suspect]
     Active Substance: BEVACIZUMAB
     Indication: COLORECTAL CANCER
     Dosage: 450 MG, EVERY 2 WEEKS
     Route: 042
     Dates: start: 20130610, end: 20140210
  7. OXALIPLATIN. [Suspect]
     Active Substance: OXALIPLATIN
     Indication: COLORECTAL CANCER
     Dosage: 100 MG, EVERY 8 DAYS
     Route: 042
     Dates: start: 20140224, end: 20140317
  8. IRINOTECAN [Suspect]
     Active Substance: IRINOTECAN
     Dosage: 160 MG, EVERY WEEK
     Route: 042
     Dates: start: 20130617, end: 20130722
  9. 5-FLUOROURACIL [Suspect]
     Active Substance: FLUOROURACIL
     Dosage: 4000 MG, EVERY 8 DAYS
     Route: 042
     Dates: start: 20140224, end: 20140317
  10. ALLOPURINOL. [Concomitant]
     Active Substance: ALLOPURINOL
     Indication: HYPERCHOLESTEROLAEMIA
     Dosage: 300 MG, 1X/DAY
     Route: 048
     Dates: start: 20050107, end: 20140402
  11. NORVASC [Concomitant]
     Active Substance: AMLODIPINE BESYLATE
     Indication: HYPERTENSION
     Dosage: 5 MG, 1X/DAY
     Route: 048
     Dates: start: 20050107, end: 20140402
  12. IRINOTECAN [Suspect]
     Active Substance: IRINOTECAN
     Indication: COLORECTAL CANCER
     Dosage: 160 MG, EVERY DAY
     Route: 042
     Dates: start: 20130610

REACTIONS (6)
  - Haematemesis [Fatal]
  - Neoplasm progression [Fatal]
  - Atelectasis [Recovered/Resolved]
  - Oesophagobronchial fistula [Fatal]
  - Necrotising colitis [Fatal]
  - Pulmonary haemorrhage [Fatal]

NARRATIVE: CASE EVENT DATE: 20131210
